FAERS Safety Report 8388149-2 (Version None)
Quarter: 2012Q2

REPORT INFORMATION
  Report Type: 
  Country: None (occurrence: None)
  Receive Date: 20120525
  Receipt Date: 20120523
  Transmission Date: 20120825
  Serious: Yes (Death, Hospitalization)
  Sender: FDA-Public Use
  Company Number: US-B.I. PHARMACEUTICALS,INC./RIDGEFIELD-2012-BP-11551BP

PATIENT
  Age: 94 Year
  Sex: Male

DRUGS (1)
  1. PRADAXA [Suspect]
     Indication: OFF LABEL USE

REACTIONS (1)
  - GASTROINTESTINAL HAEMORRHAGE [None]
